FAERS Safety Report 5813443-6 (Version None)
Quarter: 2008Q3

REPORT INFORMATION
  Report Type: 
  Country: None (occurrence: None)
  Receive Date: 20080716
  Receipt Date: 20080716
  Transmission Date: 20090109
  Serious: Yes (Hospitalization)
  Sender: FDA-Public Use
  Company Number: None

PATIENT
  Sex: Male
  Weight: 104.8 kg

DRUGS (1)
  1. CISPLATIN [Suspect]
     Dosage: 210 MG
     Dates: end: 20080630

REACTIONS (10)
  - ASTHENIA [None]
  - BENIGN PROSTATIC HYPERPLASIA [None]
  - BRADYCARDIA [None]
  - CATHETER RELATED COMPLICATION [None]
  - DEVICE MIGRATION [None]
  - FATIGUE [None]
  - HAEMATURIA [None]
  - PROCEDURAL COMPLICATION [None]
  - URINARY RETENTION [None]
  - VENTRICULAR EXTRASYSTOLES [None]
